FAERS Safety Report 4927945-8 (Version None)
Quarter: 2006Q1

REPORT INFORMATION
  Report Type: 
  Country: None (occurrence: None)
  Receive Date: 20060228
  Receipt Date: 20051222
  Transmission Date: 20060701
  Serious: Yes (Hospitalization)
  Sender: FDA-Public Use
  Company Number: FR-BRISTOL-MYERS SQUIBB COMPANY-13228465

PATIENT
  Age: 30 Year
  Sex: Male
  Weight: 87 kg

DRUGS (3)
  1. ABILIFY [Suspect]
     Indication: SCHIZOPHRENIA
     Route: 048
     Dates: start: 20050901, end: 20051220
  2. NOZINAN [Suspect]
     Indication: ANXIETY
     Route: 048
     Dates: start: 20050901
  3. SERESTA [Suspect]
     Indication: ANXIETY
     Route: 048
     Dates: start: 20050901, end: 20051220

REACTIONS (5)
  - CONDITION AGGRAVATED [None]
  - DRUG INEFFECTIVE [None]
  - PSYCHOTIC DISORDER [None]
  - REFUSAL OF TREATMENT BY PATIENT [None]
  - TREATMENT NONCOMPLIANCE [None]
